FAERS Safety Report 23976071 (Version 1)
Quarter: 2024Q2

REPORT INFORMATION
  Report Type: Report from Study
  Country: US (occurrence: US)
  Receive Date: 20240614
  Receipt Date: 20240614
  Transmission Date: 20240716
  Serious: Yes (Other)
  Sender: FDA-Public Use
  Company Number: US-GLAXOSMITHKLINE-US2024AMR071226

PATIENT

DRUGS (1)
  1. BELIMUMAB [Suspect]
     Active Substance: BELIMUMAB
     Indication: Systemic lupus erythematosus
     Dosage: UNK
     Route: 058

REACTIONS (7)
  - Systemic lupus erythematosus [Unknown]
  - Rash [Unknown]
  - Joint swelling [Unknown]
  - Joint stiffness [Unknown]
  - Complement factor increased [Unknown]
  - Double stranded DNA antibody positive [Unknown]
  - Drug ineffective [Unknown]
